FAERS Safety Report 26117769 (Version 1)
Quarter: 2025Q4

REPORT INFORMATION
  Report Type: Spontaneous
  Country: EU (occurrence: EU)
  Receive Date: 20251203
  Receipt Date: 20251203
  Transmission Date: 20260118
  Serious: Yes (Other)
  Sender: MYLAN
  Company Number: EU-KRKA-DE2025K20434SPO

PATIENT
  Sex: Female

DRUGS (8)
  1. LENALIDOMIDE [Suspect]
     Active Substance: LENALIDOMIDE
     Indication: Diffuse large B-cell lymphoma
     Dosage: 15 MILLIGRAM, QD (15 MG, PER DAY )
     Dates: start: 20220314, end: 202210
  2. LENALIDOMIDE [Suspect]
     Active Substance: LENALIDOMIDE
     Dosage: 15 MILLIGRAM, QD (15 MG, PER DAY )
     Route: 065
     Dates: start: 20220314, end: 202210
  3. LENALIDOMIDE [Suspect]
     Active Substance: LENALIDOMIDE
     Dosage: 15 MILLIGRAM, QD (15 MG, PER DAY )
     Route: 065
     Dates: start: 20220314, end: 202210
  4. LENALIDOMIDE [Suspect]
     Active Substance: LENALIDOMIDE
     Dosage: 15 MILLIGRAM, QD (15 MG, PER DAY )
     Dates: start: 20220314, end: 202210
  5. TAFASITAMAB [Suspect]
     Active Substance: TAFASITAMAB
     Indication: Diffuse large B-cell lymphoma
     Dosage: UNK
  6. TAFASITAMAB [Suspect]
     Active Substance: TAFASITAMAB
     Dosage: UNK
     Route: 065
  7. TAFASITAMAB [Suspect]
     Active Substance: TAFASITAMAB
     Dosage: UNK
     Route: 065
  8. TAFASITAMAB [Suspect]
     Active Substance: TAFASITAMAB
     Dosage: UNK

REACTIONS (5)
  - Diffuse large B-cell lymphoma [Unknown]
  - Disease progression [Unknown]
  - Nodule [Unknown]
  - Lung infiltration [Unknown]
  - Off label use [Unknown]

NARRATIVE: CASE EVENT DATE: 20220801
